FAERS Safety Report 4973576-3 (Version None)
Quarter: 2006Q2

REPORT INFORMATION
  Report Type: 
  Country: None (occurrence: None)
  Receive Date: 20060413
  Receipt Date: 20060413
  Transmission Date: 20061013
  Serious: Yes (Death)
  Sender: FDA-Public Use
  Company Number: None

PATIENT
  Age: 48 Year
  Sex: Male
  Weight: 119.7496 kg

DRUGS (1)
  1. FENTANYL [Suspect]
     Indication: PAIN
     Dosage: 100MCG/HOUR -4 PATCHES -  EVERY 72 HOURS   TRANSDERMAL
     Route: 062
     Dates: start: 20060109, end: 20060203

REACTIONS (1)
  - DRUG TOXICITY [None]
